FAERS Safety Report 5515152-X (Version None)
Quarter: 2007Q4

REPORT INFORMATION
  Report Type: 
  Country: None (occurrence: None)
  Receive Date: 20071113
  Receipt Date: 20070122
  Transmission Date: 20080405
  Serious: No
  Sender: FDA-Public Use
  Company Number: A0636533A

PATIENT
  Age: 60 Year
  Sex: Male

DRUGS (5)
  1. CARVEDILOL [Suspect]
     Indication: DRUG USE FOR UNKNOWN INDICATION
     Dosage: 3.125MG TWICE PER DAY
     Route: 048
     Dates: start: 20061101
  2. PLAVIX [Concomitant]
  3. ASPIRIN [Concomitant]
  4. XANAX [Concomitant]
  5. ZOCOR [Concomitant]

REACTIONS (6)
  - CHEST DISCOMFORT [None]
  - CHEST PAIN [None]
  - COLD SWEAT [None]
  - HEADACHE [None]
  - LIMB DISCOMFORT [None]
  - PAIN [None]
